FAERS Safety Report 12394370 (Version 1)
Quarter: 2016Q2

REPORT INFORMATION
  Report Type: Report from Study
  Country: IT (occurrence: IT)
  Receive Date: 20160523
  Receipt Date: 20160523
  Transmission Date: 20160815
  Serious: Yes (Other)
  Sender: FDA-Public Use
  Company Number: IT-CELGENEUS-ITA-2016052114

PATIENT
  Age: 67 Year
  Sex: Male

DRUGS (2)
  1. ABRAXANE [Suspect]
     Active Substance: PACLITAXEL
     Indication: PANCREATIC CARCINOMA METASTATIC
     Dosage: 2600 MG/M2 ON DAY 1 260 MG/M??ON DAY 20
     Route: 065
     Dates: start: 201603, end: 201604
  2. GEMCITABINE [Suspect]
     Active Substance: GEMCITABINE\GEMCITABINE HYDROCHLORIDE
     Indication: PANCREATIC CARCINOMA METASTATIC
     Dosage: 2600 MG/M2 ON DAY 1 260 MG/M??ON DAY 20
     Route: 065
     Dates: start: 201603, end: 201604

REACTIONS (2)
  - Pancreatic carcinoma metastatic [Unknown]
  - Adverse event [Unknown]
